FAERS Safety Report 15955224 (Version 2)
Quarter: 2020Q2

REPORT INFORMATION
  Report Type: Spontaneous
  Country: US (occurrence: US)
  Receive Date: 20190213
  Receipt Date: 20200528
  Transmission Date: 20200713
  Serious: Yes (Other)
  Sender: FDA-Public Use
  Company Number: US-UCBSA-2019005170

PATIENT
  Sex: Male

DRUGS (1)
  1. CIMZIA [Suspect]
     Active Substance: CERTOLIZUMAB PEGOL
     Indication: PRODUCT USED FOR UNKNOWN INDICATION
     Dosage: UNK
     Route: 058

REACTIONS (7)
  - Stevens-Johnson syndrome [Recovered/Resolved]
  - Oral mucosal erythema [Recovered/Resolved]
  - Mouth swelling [Recovered/Resolved]
  - Oral mucosal blistering [Recovered/Resolved]
  - Oral pain [Recovered/Resolved]
  - Oral mucosal exfoliation [Recovered/Resolved]
  - Hyperaesthesia teeth [Recovered/Resolved]
